FAERS Safety Report 8799688 (Version 2)
Quarter: 2013Q4

REPORT INFORMATION
  Report Type: Spontaneous
  Country: US (occurrence: US)
  Receive Date: 20120919
  Receipt Date: 20131101
  Transmission Date: 20140711
  Serious: No
  Sender: FDA-Public Use
  Company Number: US-009507513-1209USA003062

PATIENT
  Age: 33 Year
  Sex: Female

DRUGS (5)
  1. ISENTRESS [Suspect]
     Route: 048
  2. NORVIR [Suspect]
  3. RETROVIR [Suspect]
  4. PREZISTA [Suspect]
     Route: 048
  5. TRUVADA [Suspect]

REACTIONS (1)
  - Anaemia [Unknown]
